FAERS Safety Report 7038939-3 (Version None)
Quarter: 2010Q4

REPORT INFORMATION
  Report Type: 
  Country: None (occurrence: None)
  Receive Date: 20101012
  Receipt Date: 20101004
  Transmission Date: 20110411
  Serious: Yes (Other)
  Sender: FDA-Public Use
  Company Number: NL-JNJFOC-20101000811

PATIENT
  Age: 11 Year
  Sex: Male
  Weight: 32 kg

DRUGS (3)
  1. CONCERTA [Suspect]
     Indication: PRODUCT USED FOR UNKNOWN INDICATION
  2. FISH OIL [Concomitant]
  3. MELATONIN [Concomitant]

REACTIONS (2)
  - CONCUSSION [None]
  - HEADACHE [None]
